FAERS Safety Report 11008915 (Version 1)
Quarter: 2015Q2

REPORT INFORMATION
  Report Type: Spontaneous
  Country: JP (occurrence: None)
  Receive Date: 20150408
  Receipt Date: 20150408
  Transmission Date: 20150821
  Serious: Yes (Other)
  Sender: FDA-Public Use
  Company Number: FK201501582

PATIENT
  Age: 67 Year
  Sex: Female

DRUGS (4)
  1. FLUOROURACIL. [Suspect]
     Active Substance: FLUOROURACIL
     Indication: COLON CANCER
     Dates: start: 201109
  2. LEUCOVORIN CALCIUM (LEUCOVORIN CALCIUM) [Suspect]
     Active Substance: LEUCOVORIN CALCIUM
     Indication: COLON CANCER
     Dates: start: 201109
  3. OXALIPLATIN (OXALIPLATIN) [Suspect]
     Active Substance: OXALIPLATIN
     Indication: COLON CANCER
     Dates: start: 201109
  4. BEVACIZUMAB (BEVACIZUMAB) [Suspect]
     Active Substance: BEVACIZUMAB
     Indication: COLON CANCER
     Dates: start: 201111

REACTIONS (1)
  - Posterior reversible encephalopathy syndrome [None]
